FAERS Safety Report 9630643 (Version 2)
Quarter: 2013Q4

REPORT INFORMATION
  Report Type: Spontaneous
  Country: GB (occurrence: GB)
  Receive Date: 20131018
  Receipt Date: 20131122
  Transmission Date: 20140711
  Serious: Yes (Hospitalization)
  Sender: FDA-Public Use
  Company Number: GB-BRISTOL-MYERS SQUIBB COMPANY-19550573

PATIENT
  Age: 67 Year
  Sex: Male

DRUGS (2)
  1. BYETTA PEN DISPOSABLE [Suspect]
     Indication: TYPE 2 DIABETES MELLITUS
     Dosage: THERAPY INTIALLY STARTED WITH 5MCG AND THEN CHANGED TO 10MCG?10MCG/0.04ML
     Route: 030
     Dates: start: 20130712, end: 20130809
  2. CETRIZINE [Concomitant]

REACTIONS (4)
  - Cerebrovascular accident [Recovered/Resolved]
  - Swelling face [Not Recovered/Not Resolved]
  - Nausea [Recovered/Resolved]
  - Abdominal pain upper [Recovered/Resolved]
